FAERS Safety Report 8384278-8 (Version None)
Quarter: 2012Q2

REPORT INFORMATION
  Report Type: 
  Country: None (occurrence: None)
  Receive Date: 20120524
  Receipt Date: 20120523
  Transmission Date: 20120825
  Serious: Yes (Other)
  Sender: FDA-Public Use
  Company Number: CA-PURDUE-CAN-2012-0002875

PATIENT
  Age: 63 Year
  Sex: Female

DRUGS (6)
  1. RESTORIL                           /00393701/ [Concomitant]
     Indication: PRODUCT USED FOR UNKNOWN INDICATION
     Dosage: 30 MG, DAILY
     Route: 065
  2. OXYCODONE HCL [Suspect]
     Indication: PAIN
     Dosage: 40 MG, QID
     Route: 048
     Dates: start: 20120314
  3. METOPROLOL [Concomitant]
     Indication: PRODUCT USED FOR UNKNOWN INDICATION
     Dosage: 100 MG, DAILY
     Route: 065
  4. GLYCERIN                           /00200601/ [Concomitant]
     Indication: PRODUCT USED FOR UNKNOWN INDICATION
     Route: 065
  5. OXAZEPAM [Concomitant]
     Indication: PRODUCT USED FOR UNKNOWN INDICATION
     Dosage: 30 MG, DAILY
     Route: 065
  6. RALOXIFENE HCL [Concomitant]
     Indication: PRODUCT USED FOR UNKNOWN INDICATION
     Dosage: 60 MG, UNK
     Route: 065

REACTIONS (4)
  - EUPHORIC MOOD [None]
  - PALPITATIONS [None]
  - DRUG EFFECT DECREASED [None]
  - DIZZINESS [None]
